FAERS Safety Report 7793681-6 (Version None)
Quarter: 2011Q4

REPORT INFORMATION
  Report Type: 
  Country: None (occurrence: None)
  Receive Date: 20111003
  Receipt Date: 20110922
  Transmission Date: 20120403
  Serious: Yes (Hospitalization)
  Sender: FDA-Public Use
  Company Number: US-US-EMD SERONO, INC.-7051533

PATIENT
  Sex: Male
  Weight: 121 kg

DRUGS (3)
  1. ANTIHYPERTENSIVE [Concomitant]
     Indication: HYPERTENSION
  2. REBIF [Suspect]
     Indication: MULTIPLE SCLEROSIS
     Route: 058
     Dates: start: 20050101, end: 20080101
  3. REBIF [Suspect]
     Route: 058
     Dates: start: 20090101

REACTIONS (3)
  - ANAEMIA [None]
  - MULTIPLE SCLEROSIS RELAPSE [None]
  - COLON CANCER STAGE II [None]
